FAERS Safety Report 7217495-0 (Version None)
Quarter: 2011Q1

REPORT INFORMATION
  Report Type: 
  Country: None (occurrence: None)
  Receive Date: 20110110
  Receipt Date: 20101231
  Transmission Date: 20110831
  Serious: Yes (Death)
  Sender: FDA-Public Use
  Company Number: US-PFIZER INC-2011002344

PATIENT
  Age: 48 Year
  Sex: Male

DRUGS (6)
  1. LAMOTRIGINE [Suspect]
     Dosage: UNK
  2. QUETIAPINE [Suspect]
  3. GABAPENTIN [Suspect]
  4. BUPROPION [Suspect]
  5. ESOMEPRAZOLE [Suspect]
  6. CLONAZEPAM [Suspect]

REACTIONS (3)
  - CARDIAC ARREST [None]
  - COMPLETED SUICIDE [None]
  - RESPIRATORY ARREST [None]
